FAERS Safety Report 7130643-6 (Version None)
Quarter: 2010Q4

REPORT INFORMATION
  Report Type: 
  Country: None (occurrence: None)
  Receive Date: 20101029
  Receipt Date: 20100819
  Transmission Date: 20110411
  Serious: Yes (Hospitalization)
  Sender: FDA-Public Use
  Company Number: DE-003474

PATIENT
  Sex: Male
  Weight: 80 kg

DRUGS (13)
  1. DEGARELIX (DEGARELIX) (240 MG, 80 MG) [Suspect]
     Indication: PROSTATE CANCER
     Dosage: 240 MG 1X SUBCUTANEOUS, 80 MG 1X/MONTH SUBCUTANEOUS
     Route: 058
     Dates: start: 20091015, end: 20091015
  2. DEGARELIX (DEGARELIX) (240 MG, 80 MG) [Suspect]
     Indication: PROSTATE CANCER
     Dosage: 240 MG 1X SUBCUTANEOUS, 80 MG 1X/MONTH SUBCUTANEOUS
     Route: 058
     Dates: start: 20091112, end: 20100331
  3. METOPROLOL [Concomitant]
  4. PIRETANID [Concomitant]
  5. OMEPRAZOLE [Concomitant]
  6. SIMVASTATIN [Concomitant]
  7. BUDESONIDE [Concomitant]
  8. TIOTROPIUM [Concomitant]
  9. LORMETAZEPAM [Concomitant]
  10. ACETYLSALICYLIC ACID [Concomitant]
  11. IODINE [Concomitant]
  12. LEVOTHYROXINE [Concomitant]
  13. DICLOFENAC SODIUM [Concomitant]

REACTIONS (2)
  - DEHYDRATION [None]
  - GASTROINTESTINAL VIRAL INFECTION [None]
